FAERS Safety Report 24355470 (Version 1)
Quarter: 2024Q3

REPORT INFORMATION
  Report Type: Spontaneous
  Country: GB (occurrence: GB)
  Receive Date: 20240924
  Receipt Date: 20240924
  Transmission Date: 20241017
  Serious: Yes (Other)
  Sender: NOVO NORDISK
  Company Number: None

PATIENT
  Age: 34 Year
  Sex: Female

DRUGS (1)
  1. WEGOVY [Suspect]
     Active Substance: SEMAGLUTIDE
     Indication: Weight control
     Dosage: 1 MG, QW
     Dates: start: 20240506, end: 20240904

REACTIONS (2)
  - Hypophosphataemia [Recovering/Resolving]
  - Mineral deficiency [Unknown]

NARRATIVE: CASE EVENT DATE: 20240902
